FAERS Safety Report 10273268 (Version 1)
Quarter: 2014Q2

REPORT INFORMATION
  Report Type: Spontaneous
  Country: US (occurrence: None)
  Receive Date: 20140630
  Receipt Date: 20140630
  Transmission Date: 20141212
  Serious: Yes (Hospitalization)
  Sender: FDA-Public Use
  Company Number: US-H14001-14-00117

PATIENT
  Sex: 0

DRUGS (2)
  1. DIGOXIN (DIGOXIN) (UNKNOWN) (DIGOXIN) [Suspect]
     Indication: ATRIAL FIBRILLATION
     Dosage: FROM 125-250 MCG
  2. DIGOXIN (DIGOXIN) (UNKNOWN) (DIGOXIN) [Suspect]
     Indication: CARDIAC FAILURE
     Dosage: FROM 125-250 MCG

REACTIONS (2)
  - Electrocardiogram change [None]
  - Toxicity to various agents [None]
